FAERS Safety Report 21681846 (Version 2)
Quarter: 2022Q4

REPORT INFORMATION
  Report Type: Spontaneous
  Country: US (occurrence: US)
  Receive Date: 20221205
  Receipt Date: 20221206
  Transmission Date: 20230113
  Serious: No
  Sender: FDA-Public Use
  Company Number: US-002147023-NVSC2022US281556

PATIENT
  Age: 64 Year
  Sex: Female

DRUGS (2)
  1. TYKERB [Suspect]
     Active Substance: LAPATINIB DITOSYLATE
     Indication: Breast cancer female
     Dosage: 1000 MG, QD
     Route: 048
     Dates: start: 20200326
  2. TYKERB [Suspect]
     Active Substance: LAPATINIB DITOSYLATE
     Indication: Malignant nipple neoplasm female
     Dosage: UNK (DOUBLE DOSE OF TYKERB, TOOK IT 4 AM AND THEN AGAIN AT 10 AM ONCE SHE GOT TO WORK)
     Route: 048
     Dates: start: 20221129

REACTIONS (1)
  - Incorrect dose administered [Unknown]

NARRATIVE: CASE EVENT DATE: 20221129
